FAERS Safety Report 6635641-4 (Version None)
Quarter: 2010Q1

REPORT INFORMATION
  Report Type: 
  Country: None (occurrence: None)
  Receive Date: 20100312
  Receipt Date: 20100312
  Transmission Date: 20100710
  Serious: No
  Sender: FDA-Public Use
  Company Number: None

PATIENT
  Age: 91 Year
  Sex: Male

DRUGS (1)
  1. NPH INSULIN [Suspect]
     Dosage: 40 UNITS AM SQ
     Route: 058
     Dates: start: 20010625

REACTIONS (4)
  - ATRIAL FLUTTER [None]
  - CARDIAC DISORDER [None]
  - HYPOGLYCAEMIA [None]
  - UNRESPONSIVE TO STIMULI [None]
